FAERS Safety Report 6876846-7 (Version None)
Quarter: 2010Q3

REPORT INFORMATION
  Report Type: 
  Country: None (occurrence: None)
  Receive Date: 20100727
  Receipt Date: 20100712
  Transmission Date: 20110219
  Serious: Yes (Death)
  Sender: FDA-Public Use
  Company Number: FR-GENENTECH-304564

PATIENT

DRUGS (14)
  1. RITUXIMAB [Suspect]
     Indication: PROPHYLAXIS
     Dosage: 375 MG/M2, UNK
     Route: 065
  2. MYCOPHENOLATE MOFETIL [Suspect]
     Indication: PROPHYLAXIS
     Dosage: 2 G, UNK
     Route: 065
  3. MYCOPHENOLATE MOFETIL [Suspect]
     Dosage: 1 G, BID
     Route: 065
  4. SULFAMETHOXAZOLE AND TRIMETHOPRIM [Suspect]
     Indication: PNEUMOCYSTIS JIROVECI PNEUMONIA
     Dosage: UNK
     Route: 065
  5. IMMUNE GLOBULIN IV NOS [Suspect]
     Indication: PROPHYLAXIS
     Dosage: UNK
     Route: 042
  6. THYMOGLOBULIN [Suspect]
     Indication: PROPHYLAXIS
     Dosage: 75 MG, QAM
     Route: 065
  7. BASILIXIMAB [Suspect]
     Indication: PROPHYLAXIS
     Dosage: 20 MG, UNK
     Route: 042
  8. CYCLOSPORINE [Suspect]
     Indication: PROPHYLAXIS
     Dosage: UNK
     Route: 065
  9. TACROLIMUS [Suspect]
     Indication: PROPHYLAXIS
     Dosage: UNK
     Route: 065
  10. PREDNISONE [Suspect]
     Indication: PROPHYLAXIS
     Dosage: 500 MG, UNK
     Route: 065
  11. PREDNISONE [Suspect]
     Dosage: 125 MG, UNK
     Route: 065
  12. PREDNISONE [Suspect]
     Dosage: UNK
     Route: 065
  13. PREDNISONE [Suspect]
     Dosage: UNK
     Route: 065
  14. VALACYCLOVIR [Suspect]
     Indication: PROPHYLAXIS
     Dosage: UNK
     Route: 065

REACTIONS (18)
  - ARTERIAL THROMBOSIS [None]
  - AUTOIMMUNE DISORDER [None]
  - BK VIRUS INFECTION [None]
  - CEREBRAL HAEMORRHAGE [None]
  - CERVIX CARCINOMA [None]
  - CYTOMEGALOVIRUS INFECTION [None]
  - DRUG INEFFECTIVE [None]
  - GRAFT LOSS [None]
  - PNEUMOCYSTIS JIROVECI INFECTION [None]
  - PNEUMONITIS [None]
  - POLYOMAVIRUS-ASSOCIATED NEPHROPATHY [None]
  - PROTEINURIA [None]
  - PYELONEPHRITIS [None]
  - SEPSIS [None]
  - SEPTIC SHOCK [None]
  - TRANSPLANT REJECTION [None]
  - TUBERCULOSIS [None]
  - WOUND INFECTION [None]
